FAERS Safety Report 5235550-1 (Version None)
Quarter: 2007Q1

REPORT INFORMATION
  Report Type: 
  Country: None (occurrence: None)
  Receive Date: 20070208
  Receipt Date: 20070208
  Transmission Date: 20070707
  Serious: Yes (Disabling, Other)
  Sender: FDA-Public Use
  Company Number: None

PATIENT
  Age: 46 Year
  Sex: Male
  Weight: 108.8633 kg

DRUGS (1)
  1. EFFEXOR [Suspect]
     Indication: ANXIETY
     Dosage: 225 DAILEY PO
     Route: 048
     Dates: start: 20040819, end: 20070207

REACTIONS (4)
  - FEAR [None]
  - FEELING ABNORMAL [None]
  - MARITAL PROBLEM [None]
  - SUICIDAL IDEATION [None]
